FAERS Safety Report 17946152 (Version 2)
Quarter: 2020Q3

REPORT INFORMATION
  Report Type: Spontaneous
  Country: US (occurrence: US)
  Receive Date: 20200626
  Receipt Date: 20200710
  Transmission Date: 20201103
  Serious: No
  Sender: FDA-Public Use
  Company Number: US-KARYOPHARM-2020KPT000614

PATIENT

DRUGS (5)
  1. GARLIC. [Concomitant]
     Active Substance: GARLIC
     Indication: FLATULENCE
  2. ZOFRAN [Concomitant]
     Active Substance: ONDANSETRON HYDROCHLORIDE
     Indication: PRODUCT USED FOR UNKNOWN INDICATION
     Dosage: UNK, Q8H
  3. GAS?X [Concomitant]
     Active Substance: DIMETHICONE
     Indication: FLATULENCE
  4. XPOVIO [Suspect]
     Active Substance: SELINEXOR
     Indication: PLASMA CELL MYELOMA
     Dosage: 80 MG, 2X/WEEK
     Route: 048
     Dates: start: 20200526, end: 20200604
  5. XPOVIO [Suspect]
     Active Substance: SELINEXOR
     Dosage: 60 MG, 2X/WEEK
     Dates: start: 20200623

REACTIONS (12)
  - Hypersomnia [Unknown]
  - Decreased activity [Recovering/Resolving]
  - Abdominal pain [Unknown]
  - Decreased appetite [Recovering/Resolving]
  - Insomnia [Recovering/Resolving]
  - Diarrhoea [Unknown]
  - Product dose omission issue [Unknown]
  - Flatulence [Recovering/Resolving]
  - Anxiety [Unknown]
  - Dizziness [Unknown]
  - Eructation [Unknown]
  - Constipation [Unknown]

NARRATIVE: CASE EVENT DATE: 2020
